FAERS Safety Report 9826056 (Version 2)
Quarter: 2014Q1

REPORT INFORMATION
  Report Type: Report from Study
  Country: PL (occurrence: PL)
  Receive Date: 20140117
  Receipt Date: 20140117
  Transmission Date: 20141002
  Serious: Yes (Hospitalization)
  Sender: FDA-Public Use
  Company Number: PL-ASTELLAS-2012US012123

PATIENT
  Age: 8 Year
  Sex: Female
  Weight: 21 kg

DRUGS (6)
  1. TACROLIMUS OINTMENT [Suspect]
     Indication: DERMATITIS ATOPIC
     Dosage: 0.1 %, WEEKLY
     Route: 061
     Dates: start: 200603
  2. ZINNAT                             /00454602/ [Concomitant]
     Indication: BRONCHITIS
     Dosage: 125 MG, BID
     Route: 048
     Dates: start: 20121023
  3. VENTOLIN                           /00139501/ [Concomitant]
     Indication: ASTHMA
     Dosage: 100 UG, UID/QD
     Route: 055
     Dates: start: 20121023
  4. AUGMENTIN [Concomitant]
     Indication: BRONCHITIS
     Dosage: 900 MG, BID
     Dates: start: 20121121
  5. ZYX [Concomitant]
     Indication: RHINITIS ALLERGIC
     Dosage: 5 MG, UID/QD
     Route: 048
     Dates: start: 201112
  6. AVAMYS [Concomitant]
     Indication: RHINITIS ALLERGIC
     Dosage: 27.5 UG, UID/QD
     Route: 045
     Dates: start: 201112

REACTIONS (6)
  - Off label use [Unknown]
  - Rhinitis allergic [Unknown]
  - Dermatitis atopic [Unknown]
  - Asthma [Recovered/Resolved]
  - Dyspnoea [Recovered/Resolved]
  - Upper respiratory tract infection [Recovered/Resolved]
